FAERS Safety Report 7250365-0 (Version None)
Quarter: 2011Q1

REPORT INFORMATION
  Report Type: 
  Country: None (occurrence: None)
  Receive Date: 20110128
  Receipt Date: 20100726
  Transmission Date: 20110831
  Serious: No
  Sender: FDA-Public Use
  Company Number: A0872334A

PATIENT
  Age: 21 Year
  Sex: Male

DRUGS (2)
  1. COMBIVIR [Suspect]
     Route: 048
  2. ACCUTANE [Concomitant]

REACTIONS (1)
  - HYPERSENSITIVITY [None]
